FAERS Safety Report 9442144 (Version 2)
Quarter: 2013Q3

REPORT INFORMATION
  Report Type: Spontaneous
  Country: US (occurrence: US)
  Receive Date: 20130806
  Receipt Date: 20130829
  Transmission Date: 20140515
  Serious: Yes (Other)
  Sender: FDA-Public Use
  Company Number: US-JNJFOC-20130718606

PATIENT
  Age: 51 Year
  Sex: Female
  Weight: 76.66 kg

DRUGS (16)
  1. REMICADE [Suspect]
     Indication: CROHN^S DISEASE
     Route: 042
     Dates: start: 20130702
  2. REMICADE [Suspect]
     Indication: CROHN^S DISEASE
     Route: 042
     Dates: start: 20130716, end: 20130716
  3. TYLENOL [Concomitant]
     Indication: PREMEDICATION
     Dosage: 90 MINUTES BEFORE THE INFUSION
     Route: 065
  4. BENADRYL [Concomitant]
     Indication: PREMEDICATION
     Dosage: 90 MINUTES BEFORE THE INFUSION
     Route: 065
  5. HYDROCORTISONE [Concomitant]
     Indication: PREMEDICATION
     Dosage: 20 MINUTES PRIOR TO THE INFUSION
     Route: 042
  6. AMITRIPTYLINE [Concomitant]
     Route: 065
  7. CLONAZEPAM [Concomitant]
     Route: 065
  8. DIVALPROEX [Concomitant]
     Route: 065
  9. ESTRADIOL [Concomitant]
     Route: 065
  10. FLUTICASONE [Concomitant]
     Route: 065
  11. IRON [Concomitant]
     Route: 065
  12. LYRICA [Concomitant]
     Route: 065
  13. MAXAIR [Concomitant]
     Route: 065
  14. OMEPRAZOLE [Concomitant]
     Route: 065
  15. POTASSIUM GLUCONATE [Concomitant]
     Route: 065
  16. PROZAC [Concomitant]
     Route: 065

REACTIONS (2)
  - Asthma [Recovered/Resolved]
  - Herpes zoster [Unknown]
